FAERS Safety Report 5328174-9 (Version None)
Quarter: 2007Q2

REPORT INFORMATION
  Report Type: 
  Country: None (occurrence: None)
  Receive Date: 20070517
  Receipt Date: 20070510
  Transmission Date: 20071010
  Serious: Yes (Hospitalization, Disabling)
  Sender: FDA-Public Use
  Company Number: US-ABBOTT-04P-163-0279605-00

PATIENT
  Sex: Male

DRUGS (20)
  1. RITONAVIR SOFT GELATIN CAPSULES [Suspect]
     Indication: HIV INFECTION
     Route: 048
     Dates: start: 20040727, end: 20041020
  2. RITONAVIR SOFT GELATIN CAPSULES [Suspect]
     Dates: start: 20041101
  3. TIPRANAVIR [Concomitant]
     Indication: HIV INFECTION
     Route: 048
     Dates: end: 20041020
  4. DIDANOSINE [Concomitant]
     Indication: DRUG USE FOR UNKNOWN INDICATION
  5. VIREAD [Concomitant]
     Indication: DRUG USE FOR UNKNOWN INDICATION
  6. FUZEON [Concomitant]
     Indication: DRUG USE FOR UNKNOWN INDICATION
  7. EMTRIVA [Concomitant]
     Indication: DRUG USE FOR UNKNOWN INDICATION
  8. CLONIDINE [Concomitant]
     Indication: DRUG USE FOR UNKNOWN INDICATION
  9. HYDRALAZINE HCL [Concomitant]
     Indication: DRUG USE FOR UNKNOWN INDICATION
  10. METAPROLOL XL [Concomitant]
     Indication: DRUG USE FOR UNKNOWN INDICATION
  11. DOXAZOSIN MESYLATE [Concomitant]
     Indication: DRUG USE FOR UNKNOWN INDICATION
  12. FAMOTIDINE [Concomitant]
     Indication: DRUG USE FOR UNKNOWN INDICATION
  13. AMLODIPINE BESYLATE [Concomitant]
     Indication: DRUG USE FOR UNKNOWN INDICATION
  14. ACYCLOVIR [Concomitant]
     Indication: DRUG USE FOR UNKNOWN INDICATION
  15. DAPSONE [Concomitant]
     Indication: DRUG USE FOR UNKNOWN INDICATION
  16. FLUCONAZOLE [Concomitant]
     Indication: DRUG USE FOR UNKNOWN INDICATION
  17. ORACIT [Concomitant]
     Indication: DRUG USE FOR UNKNOWN INDICATION
  18. EPOETIN ALFA [Concomitant]
     Indication: DRUG USE FOR UNKNOWN INDICATION
  19. FILGRASTIM [Concomitant]
     Indication: DRUG USE FOR UNKNOWN INDICATION
  20. TEMAZEPAM [Concomitant]
     Indication: DRUG USE FOR UNKNOWN INDICATION

REACTIONS (2)
  - HYPERTENSIVE CRISIS [None]
  - RENAL IMPAIRMENT [None]
